FAERS Safety Report 10571223 (Version 5)
Quarter: 2015Q2

REPORT INFORMATION
  Report Type: Report from Study
  Country: US (occurrence: US)
  Receive Date: 20141107
  Receipt Date: 20150619
  Transmission Date: 20150821
  Serious: Yes (Other)
  Sender: FDA-Public Use
  Company Number: PHEH2014US012049

PATIENT
  Age: 59 Year
  Sex: Female
  Weight: 63.49 kg

DRUGS (9)
  1. SERTRALINE [Concomitant]
     Active Substance: SERTRALINE HYDROCHLORIDE
  2. GABAPENTIN. [Concomitant]
     Active Substance: GABAPENTIN
  3. OMEPRAZOLE. [Concomitant]
     Active Substance: OMEPRAZOLE
  4. LISINOPRIL. [Concomitant]
     Active Substance: LISINOPRIL
  5. MULTI-VIT [Concomitant]
     Active Substance: VITAMINS
  6. GILENYA [Suspect]
     Active Substance: FINGOLIMOD HYDROCHLORIDE
     Indication: MULTIPLE SCLEROSIS
     Dosage: 0.5 MG, QD
     Route: 048
     Dates: start: 20130909, end: 201310
  7. HCT ^KIMIA FARMA^ [Concomitant]
  8. BUPROPION [Concomitant]
     Active Substance: BUPROPION
  9. GILENYA [Suspect]
     Active Substance: FINGOLIMOD HYDROCHLORIDE
     Dosage: 0.5 MG, QD
     Route: 048
     Dates: start: 201401, end: 20140901

REACTIONS (7)
  - Pruritus generalised [Not Recovered/Not Resolved]
  - Blood blister [Not Recovered/Not Resolved]
  - Oral mucosal blistering [Recovered/Resolved]
  - Local swelling [Not Recovered/Not Resolved]
  - Rash [Recovered/Resolved]
  - Stevens-Johnson syndrome [Recovered/Resolved]
  - Basal cell carcinoma [Unknown]

NARRATIVE: CASE EVENT DATE: 20140401
